FAERS Safety Report 21212699 (Version 1)
Quarter: 2022Q3

REPORT INFORMATION
  Report Type: Spontaneous
  Country: US (occurrence: None)
  Receive Date: 20220812
  Receipt Date: 20220812
  Transmission Date: 20221027
  Serious: No
  Sender: FDA-Public Use
  Company Number: None

PATIENT
  Age: 58 Year
  Sex: Female
  Weight: 131.54 kg

DRUGS (37)
  1. IBRANCE [Suspect]
     Active Substance: PALBOCICLIB
     Indication: Breast cancer female
     Dosage: OTHER FREQUENCY : 3W,1W OFF;?
     Route: 048
     Dates: start: 202104
  2. ASPIRIN [Concomitant]
     Active Substance: ASPIRIN
  3. AMITRIPTYLINE HCI [Concomitant]
  4. METHANAMINE [Concomitant]
  5. MANDELATE [Concomitant]
  6. AZO URINARY PAIN RELIEF [Concomitant]
     Active Substance: PHENAZOPYRIDINE HYDROCHLORIDE
  7. CHOLESTYRAMINE LIGHT [Concomitant]
     Active Substance: CHOLESTYRAMINE
  8. CLOPDOGREL BISULFATE [Concomitant]
  9. CLOTRIMAZOLE [Concomitant]
     Active Substance: CLOTRIMAZOLE
  10. DICYCLOMINE HCI [Concomitant]
  11. DOXYCYCLINE [Concomitant]
     Active Substance: DOXYCYCLINE
  12. ESCITALOPRAM [Concomitant]
     Active Substance: ESCITALOPRAM OXALATE
  13. OXALATE [Concomitant]
  14. FAMOTIDINE [Concomitant]
     Active Substance: FAMOTIDINE
  15. FASLODEX [Concomitant]
     Active Substance: FULVESTRANT
  16. SACCHAROMYCES CEREVISIAE [Concomitant]
     Active Substance: SACCHAROMYCES CEREVISIAE
  17. GAVISCON [Concomitant]
     Active Substance: ALUMINUM HYDROXIDE\MAGNESIUM CARBONATE
  18. HYDROCHLOROTHIAZIDE [Concomitant]
     Active Substance: HYDROCHLOROTHIAZIDE
  19. IBUPROFEN [Concomitant]
     Active Substance: IBUPROFEN
  20. IMODIUM A-D [Concomitant]
     Active Substance: LOPERAMIDE HYDROCHLORIDE
  21. KETOONAZOLE [Concomitant]
  22. LOPERAMIDE HYDROCHLORIDE [Concomitant]
     Active Substance: LOPERAMIDE HYDROCHLORIDE
  23. MECLIZINE HCI [Concomitant]
  24. METHOCARBAOL [Concomitant]
  25. METOPROLOL SUCCINATE [Concomitant]
     Active Substance: METOPROLOL SUCCINATE
  26. MOMETASONE FUROATE [Concomitant]
     Active Substance: MOMETASONE FUROATE
  27. MULTI-VITAMIN [Concomitant]
     Active Substance: .ALPHA.-TOCOPHEROL ACETATE, DL-\ASCORBIC ACID\CYANOCOBALAMIN\FLUORIDE ION\FOLIC ACID\NIACIN\PYRIDOXI
  28. NASACORT [Concomitant]
     Active Substance: TRIAMCINOLONE ACETONIDE
  29. NORCO [Concomitant]
     Active Substance: ACETAMINOPHEN\HYDROCODONE BITARTRATE
  30. NYSTATIN [Concomitant]
     Active Substance: NYSTATIN
  31. ROSUVASTATIN [Concomitant]
     Active Substance: ROSUVASTATIN
  32. TACROLIMUS [Concomitant]
     Active Substance: TACROLIMUS
  33. VALSARTAN [Concomitant]
     Active Substance: VALSARTAN
  34. VITAMIN C [Concomitant]
     Active Substance: ASCORBIC ACID
  35. VITAMIN D [Concomitant]
     Active Substance: VITAMIN D NOS
  36. XANAX [Concomitant]
     Active Substance: ALPRAZOLAM
  37. XGEVA [Concomitant]
     Active Substance: DENOSUMAB

REACTIONS (1)
  - Cystitis [None]
